FAERS Safety Report 11855594 (Version 1)
Quarter: 2015Q4

REPORT INFORMATION
  Report Type: Spontaneous
  Country: US (occurrence: US)
  Receive Date: 20151221
  Receipt Date: 20151221
  Transmission Date: 20160305
  Serious: No
  Sender: FDA-Public Use
  Company Number: US-PERRIGO-15US000741

PATIENT
  Age: 46 Year
  Sex: Female
  Weight: 53.52 kg

DRUGS (5)
  1. BACITRACIN OPHTHALMIC USP 500U/G 0S4 [Suspect]
     Active Substance: BACITRACIN
     Indication: EYE INFECTION
     Dosage: 1/2 INCH TO EYELID, SINGLE AT BEDTIME
     Route: 047
     Dates: start: 20150120, end: 20150120
  2. FLOVENT [Concomitant]
     Active Substance: FLUTICASONE PROPIONATE
     Indication: ASTHMA
     Dosage: UNK
     Route: 065
     Dates: start: 2012
  3. PROAIR HFA [Concomitant]
     Active Substance: ALBUTEROL SULFATE
     Indication: ASTHMA
     Dosage: UNK
     Route: 065
     Dates: start: 2012
  4. BACITRACIN OPHTHALMIC USP 500U/G 0S4 [Suspect]
     Active Substance: BACITRACIN
     Dosage: 1/2 INCH TO EYELID, BID
     Route: 047
     Dates: start: 20150121, end: 20150121
  5. BACITRACIN OPHTHALMIC USP 500U/G 0S4 [Suspect]
     Active Substance: BACITRACIN
     Dosage: 1/2 INCH TO EYELID, SINGLE IN THE MORNING
     Route: 047
     Dates: start: 20150122, end: 20150122

REACTIONS (4)
  - Sinus congestion [Recovering/Resolving]
  - Dysphonia [Recovered/Resolved]
  - Cough [Recovered/Resolved]
  - Wheezing [Recovered/Resolved]

NARRATIVE: CASE EVENT DATE: 20150122
